FAERS Safety Report 10699863 (Version 2)
Quarter: 2014Q4

REPORT INFORMATION
  Report Type: Spontaneous
  Country: CA (occurrence: CA)
  Receive Date: 20141013
  Receipt Date: 20141013
  Transmission Date: 20150529
  Serious: Yes (Other)
  Sender: FDA-Public Use
  Company Number: CA-APOTEX-2014AP002753

PATIENT
  Sex: Female

DRUGS (1)
  1. APO-MIRTAZAPINE [Suspect]
     Active Substance: MIRTAZAPINE
     Indication: DEPRESSION
     Dosage: 30 MG, UNK

REACTIONS (4)
  - Suicidal ideation [Unknown]
  - Formication [Unknown]
  - Drug dose omission [Unknown]
  - Insomnia [Unknown]
